FAERS Safety Report 21789863 (Version 2)
Quarter: 2023Q1

REPORT INFORMATION
  Report Type: Spontaneous
  Country: US (occurrence: US)
  Receive Date: 20221228
  Receipt Date: 20230103
  Transmission Date: 20230417
  Serious: Yes (Other)
  Sender: FDA-Public Use
  Company Number: US-PFIZER INC-PV202200130765

PATIENT
  Age: 68 Year
  Sex: Female

DRUGS (2)
  1. LEVOXYL [Suspect]
     Active Substance: LEVOTHYROXINE SODIUM
     Dosage: 6 DF, DAILY
     Route: 048
  2. SYNTHROID [Suspect]
     Active Substance: LEVOTHYROXINE SODIUM
     Dosage: UNK
     Route: 048

REACTIONS (7)
  - Autoimmune thyroiditis [Unknown]
  - Thyroid disorder [Unknown]
  - Sensitive skin [Unknown]
  - Urticaria [Unknown]
  - Pruritus [Unknown]
  - Palpitations [Unknown]
  - Illness [Unknown]
